FAERS Safety Report 4660195-1 (Version None)
Quarter: 2005Q2

REPORT INFORMATION
  Report Type: 
  Country: None (occurrence: None)
  Receive Date: 20050505
  Receipt Date: 20050112
  Transmission Date: 20051028
  Serious: No
  Sender: FDA-Public Use
  Company Number: 2004USFACT00217

PATIENT
  Age: 53 Year
  Sex: Female

DRUGS (6)
  1. FACTIVE [Suspect]
     Indication: RESPIRATORY TRACT INFECTION BACTERIAL
     Dosage: QD, ORAL
     Route: 048
     Dates: start: 20041223, end: 20041230
  2. ADVAIR (FLUTICASONE PROPIONATE, SALMETEROL XINAFOATE) [Concomitant]
  3. SINGULAIR [Concomitant]
  4. NEXIUM [Concomitant]
  5. ZYRTEC [Concomitant]
  6. ALBUTEROL [Concomitant]

REACTIONS (1)
  - RASH MACULO-PAPULAR [None]
